FAERS Safety Report 23603134 (Version 2)
Quarter: 2024Q1

REPORT INFORMATION
  Report Type: Report from Study
  Country: PT (occurrence: PT)
  Receive Date: 20240306
  Receipt Date: 20240318
  Transmission Date: 20240410
  Serious: Yes (Other)
  Sender: FDA-Public Use
  Company Number: PT-ABBVIE-5579591

PATIENT
  Age: 66 Year
  Sex: Female

DRUGS (7)
  1. CARBIDOPA\LEVODOPA [Suspect]
     Active Substance: CARBIDOPA\LEVODOPA
     Indication: Parkinson^s disease
     Dosage: 20 MG PLUS 5 MG?FREQUENCY TEXT: MORN:10CC;MAIN:5.4CC/H;EXTRA:3CC
     Route: 050
     Dates: start: 20231010
  2. CARBIDOPA\LEVODOPA [Suspect]
     Active Substance: CARBIDOPA\LEVODOPA
     Dosage: 20 MG PLUS 5 MG,?FREQUENCY TEXT: MORN:9CC;MAIN:5.6CC/H;EXTRA:3CC
     Route: 050
     Dates: start: 20240228
  3. CARBIDOPA\LEVODOPA [Suspect]
     Active Substance: CARBIDOPA\LEVODOPA
     Dosage: 20 MG PLUS 5 MG?FREQUENCY TEXT: MORN:15CC;MAIN:4.3CC/H;EXTRA:1CC
     Route: 050
     Dates: start: 20240107, end: 20240228
  4. CLOZAPINE [Concomitant]
     Active Substance: CLOZAPINE
     Indication: Product used for unknown indication
     Dosage: FORM STRENGTH: 12.5 MILLIGRAM, START DATE TEXT: BEFORE DUODOPA,
     Route: 048
  5. Folifer [Concomitant]
     Indication: Product used for unknown indication
     Dosage: START DATE TEXT: BEFORE DUODOPA ,1 TABLET
     Route: 048
  6. SINEMET CR [Concomitant]
     Active Substance: CARBIDOPA\LEVODOPA
     Indication: Product used for unknown indication
     Dosage: START DATE TEXT: BEFORE DUODOPA, TWO TABLETS AT BEDTIME
     Route: 048
  7. RIVOTRIL [Concomitant]
     Active Substance: CLONAZEPAM
     Indication: Product used for unknown indication
     Dosage: 1 TABLET, FORM STRENGTH: 0.5 MILLIGRAM AT BEDTIME?START DATE TEXT: BEFORE DUODOPA
     Route: 048

REACTIONS (3)
  - Urinary tract infection [Recovered/Resolved]
  - Constipation [Not Recovered/Not Resolved]
  - Urinary retention [Recovered/Resolved]

NARRATIVE: CASE EVENT DATE: 20231201
